FAERS Safety Report 9530232 (Version 2)
Quarter: 2013Q3

REPORT INFORMATION
  Report Type: Report from Study
  Country: DE (occurrence: DE)
  Receive Date: 20130917
  Receipt Date: 20130917
  Transmission Date: 20140515
  Serious: Yes (Death, Hospitalization)
  Sender: FDA-Public Use
  Company Number: DE-009507513-1007DEU00086

PATIENT
  Age: 59 Year
  Sex: Male
  Weight: 51 kg

DRUGS (8)
  1. VORINOSTAT [Suspect]
     Indication: SARCOMA METASTATIC
     Dosage: 400 MG, QD
     Route: 048
     Dates: start: 20100705, end: 20100825
  2. HYDROCHLOROTHIAZIDE [Concomitant]
     Dosage: 12.5 MG, QD
     Route: 048
     Dates: start: 20100404
  3. PALLADON [Concomitant]
     Indication: PAIN
     Dosage: 4 MG, TID
     Dates: start: 20100404
  4. PANTOZOL [Concomitant]
     Dosage: 40 MG, QD
     Dates: start: 20100404
  5. AMPHO MORONAL [Concomitant]
     Route: 048
  6. LYRICA [Concomitant]
     Indication: EPILEPSY
     Dosage: 1 DF, BID
     Dates: start: 20100404
  7. SULFAMETHOXAZOLE (+) TRIMETHOPRIM [Concomitant]
     Dosage: 1 DF, TID
     Dates: start: 20100404
  8. CLEXANE (ENOXAPARIN SODIUM) [Concomitant]
     Dosage: 1 DF, QD
     Route: 058
     Dates: start: 20100404

REACTIONS (4)
  - Pneumothorax [Recovered/Resolved]
  - Pyrexia [Recovered/Resolved]
  - Pneumonia [Recovered/Resolved]
  - Sarcoma metastatic [Fatal]
